FAERS Safety Report 8697228 (Version 2)
Quarter: 2019Q3

REPORT INFORMATION
  Report Type: Spontaneous
  Country: FR (occurrence: FR)
  Receive Date: 20120801
  Receipt Date: 20190905
  Transmission Date: 20191005
  Serious: Yes (Hospitalization)
  Sender: FDA-Public Use
  Company Number: FR-ASTRAZENECA-2012SE52227

PATIENT
  Age: 24001 Day
  Sex: Female
  Weight: 58 kg

DRUGS (14)
  1. ANAFRANIL [Concomitant]
     Active Substance: CLOMIPRAMINE HYDROCHLORIDE
     Indication: MAJOR DEPRESSION
     Dosage: 150 MG,QD PROGRESSIVE INTRODUCTION WITH MAINTENANCE DOSE ON 22/06/2012 AT 150 MG / DAY THEN DECRE...
     Route: 048
     Dates: start: 20120622, end: 20120704
  2. ONDANSETRON [Concomitant]
     Active Substance: ONDANSETRON
     Indication: VOMITING
     Route: 048
     Dates: start: 201202
  3. CORTICOSTEROIDS [Concomitant]
     Active Substance: CORTICOSTEROID NOS
     Route: 048
     Dates: start: 201202
  4. ZOPHREN [Concomitant]
     Active Substance: ONDANSETRON
     Indication: VOMITING
     Route: 048
     Dates: start: 201202
  5. AVASTIN [Concomitant]
     Active Substance: BEVACIZUMAB
     Indication: BREAST CANCER RECURRENT
     Dates: start: 201202
  6. TAXOL [Concomitant]
     Active Substance: PACLITAXEL
     Indication: BREAST CANCER RECURRENT
     Route: 042
     Dates: start: 201202
  7. LARGACTIL [Suspect]
     Active Substance: CHLORPROMAZINE
     Indication: MAJOR DEPRESSION
     Dosage: 200 DROPS DAILY WITH 50 DROPS IF NEEDED
     Route: 048
     Dates: start: 20120620, end: 20120628
  8. SIMVASTATIN. [Concomitant]
     Active Substance: SIMVASTATIN
     Indication: BREAST CANCER RECURRENT
     Route: 042
     Dates: start: 201202
  9. INEXIUM [Suspect]
     Active Substance: ESOMEPRAZOLE
     Route: 048
     Dates: end: 20120625
  10. ANAFRANIL [Concomitant]
     Active Substance: CLOMIPRAMINE HYDROCHLORIDE
     Indication: MAJOR DEPRESSION
     Route: 048
     Dates: start: 20120705
  11. GUTRON [Concomitant]
     Active Substance: MIDODRINE
     Indication: ORTHOSTATIC HYPOTENSION
     Dosage: FROM 22/06/2012 TO 03/07/2012: 12 TABLETS /DAY THEN FROM 03/07/2012 6 TABLETS/DAY
     Route: 048
     Dates: start: 20120622, end: 20120716
  12. ANAFRANIL [Concomitant]
     Active Substance: CLOMIPRAMINE HYDROCHLORIDE
     Indication: MAJOR DEPRESSION
     Route: 030
     Dates: start: 20120620, end: 20120620
  13. ANAFRANIL [Concomitant]
     Active Substance: CLOMIPRAMINE HYDROCHLORIDE
     Indication: MAJOR DEPRESSION
     Route: 030
     Dates: start: 20120621, end: 20120621
  14. ZYPREXA [Concomitant]
     Active Substance: OLANZAPINE
     Indication: MAJOR DEPRESSION
     Dosage: 1.0DF UNKNOWN
     Route: 048
     Dates: start: 20120628, end: 20120716

REACTIONS (1)
  - Orthostatic hypotension [Recovered/Resolved]

NARRATIVE: CASE EVENT DATE: 20120622
